FAERS Safety Report 6140056-1 (Version None)
Quarter: 2009Q2

REPORT INFORMATION
  Report Type: 
  Country: None (occurrence: None)
  Receive Date: 20090401
  Receipt Date: 20090326
  Transmission Date: 20091009
  Serious: Yes (Other)
  Sender: FDA-Public Use
  Company Number: PHEH2009US03115

PATIENT
  Sex: Female

DRUGS (4)
  1. RECLAST [Suspect]
     Indication: OSTEOPOROSIS
     Dosage: 5 MG, UNK
     Dates: start: 20090312, end: 20090312
  2. BENICAR [Concomitant]
  3. SYNTHROID [Concomitant]
  4. VYTORIN [Concomitant]

REACTIONS (12)
  - BACK PAIN [None]
  - BLOOD URINE PRESENT [None]
  - BONE PAIN [None]
  - CHILLS [None]
  - HEADACHE [None]
  - HYPERHIDROSIS [None]
  - MYALGIA [None]
  - NAUSEA [None]
  - PAIN [None]
  - PYREXIA [None]
  - VIRAL INFECTION [None]
  - VOMITING [None]
